FAERS Safety Report 8557477 (Version 2)
Quarter: 2012Q4

REPORT INFORMATION
  Report Type: 
  Country: FR (occurrence: FR)
  Receive Date: 20120511
  Receipt Date: 20121029
  Transmission Date: 20130627
  Serious: Yes (Other)
  Sender: FDA-Public Use
  Company Number: FR-UCBSA-056856

PATIENT
  Sex: Male

DRUGS (2)
  1. CIMZIA [Suspect]
     Route: 058
  2. METHOTREXATE [Concomitant]

REACTIONS (1)
  - Erysipelas [Recovered/Resolved]
